FAERS Safety Report 9920847 (Version 2)
Quarter: 2015Q4

REPORT INFORMATION
  Report Type: Report from Study
  Country: US (occurrence: US)
  Receive Date: 20140225
  Receipt Date: 20151105
  Transmission Date: 20160305
  Serious: Yes (Other)
  Sender: FDA-Public Use
  Company Number: US-ROCHE-1333563

PATIENT
  Age: 82 Year
  Sex: Male
  Weight: 97.16 kg

DRUGS (26)
  1. LUCENTIS [Suspect]
     Active Substance: RANIBIZUMAB
     Dosage: OD
     Route: 050
     Dates: start: 20110718
  2. LUCENTIS [Suspect]
     Active Substance: RANIBIZUMAB
     Dosage: OD
     Route: 050
     Dates: start: 20110822
  3. LUCENTIS [Suspect]
     Active Substance: RANIBIZUMAB
     Dosage: OD
     Route: 050
     Dates: start: 20120621
  4. LUCENTIS [Suspect]
     Active Substance: RANIBIZUMAB
     Dosage: OD
     Route: 050
     Dates: start: 20100707
  5. LUCENTIS [Suspect]
     Active Substance: RANIBIZUMAB
     Dosage: OD
     Route: 050
     Dates: start: 20120116
  6. PROPARACAINE [Concomitant]
     Active Substance: PROPARACAINE
     Route: 061
  7. LUCENTIS [Suspect]
     Active Substance: RANIBIZUMAB
     Dosage: OD
     Route: 050
     Dates: start: 20100809
  8. LUCENTIS [Suspect]
     Active Substance: RANIBIZUMAB
     Dosage: OD
     Route: 050
     Dates: start: 20110228
  9. LUCENTIS [Suspect]
     Active Substance: RANIBIZUMAB
     Dosage: OD
     Route: 050
     Dates: start: 20120423
  10. LUCENTIS [Suspect]
     Active Substance: RANIBIZUMAB
     Dosage: OD
     Route: 050
     Dates: start: 20111212
  11. LUCENTIS [Suspect]
     Active Substance: RANIBIZUMAB
     Dosage: OD
     Route: 050
     Dates: start: 20120312
  12. SYSTANE (HYPROMELLOSE 2910 (4000 MPA.S)) [Concomitant]
     Active Substance: HYPROMELLOSE 2910 (4000 MPA.S)
  13. LUCENTIS [Suspect]
     Active Substance: RANIBIZUMAB
     Dosage: OD
     Route: 050
     Dates: start: 20120213
  14. AVAPRO [Concomitant]
     Active Substance: IRBESARTAN
  15. LIPITOR [Concomitant]
     Active Substance: ATORVASTATIN CALCIUM
  16. TROPICAMIDE. [Concomitant]
     Active Substance: TROPICAMIDE
     Route: 065
  17. LUCENTIS [Suspect]
     Active Substance: RANIBIZUMAB
     Dosage: OD
     Route: 050
     Dates: start: 20110502
  18. LUCENTIS [Suspect]
     Active Substance: RANIBIZUMAB
     Dosage: OD
     Route: 050
     Dates: start: 20120521
  19. ASPIRIN. [Concomitant]
     Active Substance: ASPIRIN
  20. LIDOCAINE. [Concomitant]
     Active Substance: LIDOCAINE
     Route: 061
  21. LUCENTIS [Suspect]
     Active Substance: RANIBIZUMAB
     Indication: NEOVASCULAR AGE-RELATED MACULAR DEGENERATION
     Dosage: OD (RIGHT EYE)
     Route: 050
     Dates: start: 20100518, end: 20110228
  22. AVASTIN [Suspect]
     Active Substance: BEVACIZUMAB
     Indication: PRODUCT USED FOR UNKNOWN INDICATION
     Route: 065
     Dates: start: 20100503
  23. SOTALOL HYDROCHLORIDE. [Concomitant]
     Active Substance: SOTALOL HYDROCHLORIDE
  24. BETADINE [Concomitant]
     Active Substance: POVIDONE-IODINE
  25. LUCENTIS [Suspect]
     Active Substance: RANIBIZUMAB
     Dosage: OD
     Route: 050
     Dates: start: 20111107
  26. PHENYLEPHRINE [Concomitant]
     Active Substance: PHENYLEPHRINE\PHENYLEPHRINE HYDROCHLORIDE
     Route: 065

REACTIONS (7)
  - Back pain [Unknown]
  - Macular oedema [Unknown]
  - Cough [Unknown]
  - Dry eye [Unknown]
  - Palpitations [Unknown]
  - Musculoskeletal stiffness [Unknown]
  - Posterior capsule opacification [Unknown]

NARRATIVE: CASE EVENT DATE: 20111212
